FAERS Safety Report 26095294 (Version 1)
Quarter: 2025Q4

REPORT INFORMATION
  Report Type: Spontaneous
  Country: GB (occurrence: GB)
  Receive Date: 20251127
  Receipt Date: 20251127
  Transmission Date: 20260117
  Serious: Yes (Hospitalization, Other)
  Sender: ACCORD
  Company Number: None

PATIENT
  Age: 80 Year
  Sex: Male
  Weight: 89 kg

DRUGS (1)
  1. SOLIFENACIN SUCCINATE [Suspect]
     Active Substance: SOLIFENACIN SUCCINATE
     Indication: Nocturia
     Dosage: 5MG ONCE A DAY
     Dates: start: 20250717, end: 20250919

REACTIONS (2)
  - Medication error [Unknown]
  - Tunnel vision [Recovering/Resolving]

NARRATIVE: CASE EVENT DATE: 20250917
